FAERS Safety Report 6679850-7 (Version None)
Quarter: 2010Q2

REPORT INFORMATION
  Report Type: 
  Country: None (occurrence: None)
  Receive Date: 20100409
  Receipt Date: 20100326
  Transmission Date: 20101027
  Serious: Yes (Hospitalization)
  Sender: FDA-Public Use
  Company Number: 2010AL000072

PATIENT
  Age: 68 Year
  Sex: Female

DRUGS (30)
  1. PRALATREXATE (PRALATREXATE) [Suspect]
     Indication: NON-HODGKIN'S LYMPHOMA
     Dosage: 30 MG; QOW; IV
     Route: 042
     Dates: start: 20100125, end: 20100322
  2. GEMCITABINE [Suspect]
     Indication: NON-HODGKIN'S LYMPHOMA
     Dosage: 1200 MG; QOW; IV
     Route: 042
     Dates: start: 20100125, end: 20100322
  3. ACYCLOVIR [Concomitant]
  4. ALBUTEROL SULFATE AUTOHALER [Concomitant]
  5. CLONIDINE [Concomitant]
  6. DILTIAZEM HCL [Concomitant]
  7. FENOFIBRATE [Concomitant]
  8. FLUTICASONE PROPIONATE [Concomitant]
  9. FOLIC ACID [Concomitant]
  10. FUROSEMIDE [Concomitant]
  11. ACETAMINOPHEN AND HYDROCODONE BITARTRATE [Concomitant]
  12. HYDROCORTISONE [Concomitant]
  13. HYDROCORT-PRAMOXINE [Concomitant]
  14. LIDOCAINE 2% [Concomitant]
  15. LIDOCAINE PRILOCAINE [Concomitant]
  16. LIPASE-PROTEASE-AMYLASE [Concomitant]
  17. LORAZEPAM [Concomitant]
  18. METOPROLOL TARTRATE [Concomitant]
  19. NIFEDIPINE [Concomitant]
  20. OMEPRAZOLE/SODIUM BICARBONATE [Concomitant]
  21. ONDANSETRON HCL [Concomitant]
  22. POTASSIUM CHLORIDE [Concomitant]
  23. TRIMETHOPRIM + SULFAMETHOXAZOLE [Concomitant]
  24. ANELOX [Concomitant]
  25. CYANOCOBALAMIN [Concomitant]
  26. DIPHENHYDRAMINE-ACETAMINOPHEN [Concomitant]
  27. ERGOCALCIFEROL [Concomitant]
  28. LORATADINE [Concomitant]
  29. MAGNESIUM [Concomitant]
  30. OMEGA 3 FATTY ACIDS [Concomitant]

REACTIONS (2)
  - PLEURAL EFFUSION [None]
  - PLEURITIC PAIN [None]
